FAERS Safety Report 7632537-6 (Version None)
Quarter: 2011Q3

REPORT INFORMATION
  Report Type: 
  Country: None (occurrence: None)
  Receive Date: 20110725
  Receipt Date: 20101005
  Transmission Date: 20111222
  Serious: Yes (Other)
  Sender: FDA-Public Use
  Company Number: US-BRISTOL-MYERS SQUIBB COMPANY-15318959

PATIENT
  Age: 76 Year
  Sex: Male

DRUGS (5)
  1. MULTI-VITAMIN [Concomitant]
  2. AMLOZEK [Concomitant]
  3. TOPROL-XL [Concomitant]
  4. COUMADIN [Suspect]
     Indication: THROMBOSIS
     Dosage: INCREASED TO 7.5 MG
     Dates: start: 20100813
  5. VITAMIN B [Concomitant]

REACTIONS (3)
  - INTERNATIONAL NORMALISED RATIO DECREASED [None]
  - HAEMATURIA [None]
  - EPISTAXIS [None]
